FAERS Safety Report 5626138-9 (Version None)
Quarter: 2008Q1

REPORT INFORMATION
  Report Type: 
  Country: None (occurrence: None)
  Receive Date: 20080211
  Receipt Date: 20080130
  Transmission Date: 20080703
  Serious: Yes (Life-Threatening)
  Sender: FDA-Public Use
  Company Number: 2008S1000065

PATIENT
  Age: 59 Year
  Sex: Female

DRUGS (8)
  1. CUBICIN [Suspect]
     Indication: STAPHYLOCOCCAL BACTERAEMIA
     Dosage: 500 MG; QD; IV
     Route: 042
     Dates: start: 20080118
  2. FOSFOMYCIN [Concomitant]
  3. METOPROLOL TARTRATE [Concomitant]
  4. KEPPRA [Concomitant]
  5. ESTROGENS CONJUGATED [Concomitant]
  6. TRAMAL [Concomitant]
  7. FUROSEMIDE [Concomitant]
  8. ACETYLSALICYLIC ACID [Concomitant]

REACTIONS (1)
  - STATUS EPILEPTICUS [None]
